FAERS Safety Report 4365094-0 (Version None)
Quarter: 2004Q2

REPORT INFORMATION
  Report Type: 
  Country: None (occurrence: None)
  Receive Date: 20040520
  Receipt Date: 20040507
  Transmission Date: 20050107
  Serious: Yes (Hospitalization)
  Sender: FDA-Public Use
  Company Number: 02100-JPN-04-0129

PATIENT
  Age: 82 Year
  Sex: Female

DRUGS (2)
  1. CILOSTAZOL [Suspect]
     Dosage: 200 MG
     Route: 048
  2. FAMOTIDINE [Suspect]
     Dosage: 20 MG
     Route: 048

REACTIONS (1)
  - ELECTROCARDIOGRAM QT PROLONGED [None]
